FAERS Safety Report 5710678-8 (Version None)
Quarter: 2008Q2

REPORT INFORMATION
  Report Type: 
  Country: None (occurrence: None)
  Receive Date: 20080420
  Receipt Date: 20080407
  Transmission Date: 20081010
  Serious: Yes (Other)
  Sender: FDA-Public Use
  Company Number: PHHY2008MX04932

PATIENT
  Age: 83 Year
  Sex: Female

DRUGS (1)
  1. DIOVAN HCT [Suspect]
     Indication: HYPERTENSION
     Dosage: 160/25 MG DAILY
     Route: 048
     Dates: start: 20060201

REACTIONS (7)
  - ABASIA [None]
  - ARTHRALGIA [None]
  - DYSPNOEA [None]
  - FALL [None]
  - HYPERTENSION [None]
  - PAIN IN EXTREMITY [None]
  - PLEURAL EFFUSION [None]
